FAERS Safety Report 8832022 (Version 10)
Quarter: 2013Q3

REPORT INFORMATION
  Report Type: Report from Study
  Country: CA (occurrence: CA)
  Receive Date: 20121009
  Receipt Date: 20130927
  Transmission Date: 20140515
  Serious: Yes (Life-Threatening, Hospitalization, Other)
  Sender: FDA-Public Use
  Company Number: CA-ROCHE-1140799

PATIENT
  Age: 40 Year
  Sex: Female
  Weight: 88.5 kg

DRUGS (23)
  1. RITUXAN [Suspect]
     Indication: DERMATOMYOSITIS
     Route: 042
     Dates: start: 20120312
  2. RITUXAN [Suspect]
     Dosage: LAST DOSE ON 27/NOV/2012
     Route: 042
     Dates: start: 20121112, end: 20121127
  3. CELLCEPT [Suspect]
     Indication: PRODUCT USED FOR UNKNOWN INDICATION
     Route: 065
  4. PREDNISONE [Concomitant]
     Indication: PRODUCT USED FOR UNKNOWN INDICATION
     Route: 065
     Dates: end: 201210
  5. WARFARIN [Concomitant]
  6. FOLIC ACID [Concomitant]
  7. PARIET [Concomitant]
     Route: 065
     Dates: end: 201210
  8. METHOTREXATE [Concomitant]
  9. SEPTRA [Concomitant]
  10. COUMADIN [Concomitant]
  11. ACTONEL [Concomitant]
     Route: 065
     Dates: end: 201210
  12. DIPHENHYDRAMINE HCL [Concomitant]
     Indication: PREMEDICATION
     Route: 048
     Dates: start: 20120312
  13. DIPHENHYDRAMINE HCL [Concomitant]
     Route: 048
     Dates: start: 20121112, end: 20121127
  14. ACETAMINOPHEN [Concomitant]
     Indication: PREMEDICATION
     Route: 048
     Dates: start: 20120312
  15. ACETAMINOPHEN [Concomitant]
     Route: 048
     Dates: start: 20121112
  16. METHYLPREDNISOLONE [Concomitant]
     Indication: PREMEDICATION
     Route: 042
     Dates: start: 20120312, end: 20121127
  17. METHYLPREDNISOLONE [Concomitant]
     Route: 042
     Dates: start: 20121112
  18. SOLU-CORTEF [Concomitant]
     Indication: PREMEDICATION
     Route: 042
     Dates: start: 20121127, end: 20121127
  19. SOLU-MEDROL [Concomitant]
     Indication: PREMEDICATION
     Route: 042
     Dates: start: 20120312, end: 20121112
  20. TYLENOL [Concomitant]
     Indication: PREMEDICATION
     Route: 048
     Dates: start: 20120312, end: 20121127
  21. BENADRYL [Concomitant]
     Indication: PREMEDICATION
     Route: 048
     Dates: start: 20120312
  22. HYDROXYCHLOROQUINE [Concomitant]
  23. FLEXERIL [Concomitant]

REACTIONS (11)
  - Myocardial infarction [Unknown]
  - Osteoporosis [Unknown]
  - Hip arthroplasty [Recovered/Resolved]
  - Infusion related reaction [Unknown]
  - Carotid artery disease [Not Recovered/Not Resolved]
  - Headache [Recovered/Resolved]
  - Dizziness [Not Recovered/Not Resolved]
  - Nausea [Not Recovered/Not Resolved]
  - Headache [Recovered/Resolved]
  - Dyspepsia [Recovered/Resolved]
  - Heart rate increased [Not Recovered/Not Resolved]
